FAERS Safety Report 22018997 (Version 1)
Quarter: 2023Q1

REPORT INFORMATION
  Report Type: Spontaneous
  Country: CN (occurrence: CN)
  Receive Date: 20230222
  Receipt Date: 20230222
  Transmission Date: 20230418
  Serious: Yes (Hospitalization, Other)
  Sender: FDA-Public Use
  Company Number: None

PATIENT
  Age: 2 Year
  Sex: Male
  Weight: 12.2 kg

DRUGS (5)
  1. CYCLOPHOSPHAMIDE [Suspect]
     Active Substance: CYCLOPHOSPHAMIDE
     Indication: Acute lymphocytic leukaemia
     Dosage: 0.53 G, QD, DILUTED WITH 4:1 GLUCOSE AND SODIUM CHLORIDE 250 ML, AS A PART OF LARGE CAM REGIMEN
     Route: 041
     Dates: start: 20221128, end: 20221128
  2. DEXTROSE\SODIUM CHLORIDE [Suspect]
     Active Substance: DEXTROSE\SODIUM CHLORIDE
     Indication: Medication dilution
     Dosage: 100 ML, BID, USED TO DILUTE CYTARABINE 0.528 G
     Route: 041
     Dates: start: 20221128, end: 20221201
  3. DEXTROSE\SODIUM CHLORIDE [Suspect]
     Active Substance: DEXTROSE\SODIUM CHLORIDE
     Dosage: 250 ML, QD, USED TO DILUTE CYCLOPHOSPHAMIDE 0.53 G
     Route: 041
     Dates: start: 20221128, end: 20221128
  4. CYTARABINE [Suspect]
     Active Substance: CYTARABINE
     Indication: Acute lymphocytic leukaemia
     Dosage: 0.528 G, BID, DILUTED WITH 4:1 GLUCOSE AND SODIUM CHLORIDE 100 ML, AS A PART OF LARGE CAM REGIMEN
     Route: 041
     Dates: start: 20221128, end: 20221201
  5. MERCAPTOPURINE [Suspect]
     Active Substance: MERCAPTOPURINE
     Indication: Acute lymphocytic leukaemia
     Dosage: 25 MG, ONCE A NIGHT, AS A PART OF LARGE CAM REGIMEN
     Route: 048
     Dates: start: 20221128, end: 20221201

REACTIONS (1)
  - Myelosuppression [Recovering/Resolving]

NARRATIVE: CASE EVENT DATE: 20221205
